FAERS Safety Report 9088932 (Version 1)
Quarter: 2013Q1

REPORT INFORMATION
  Report Type: Spontaneous
  Country: US (occurrence: US)
  Receive Date: 20130201
  Receipt Date: 20130201
  Transmission Date: 20140127
  Serious: No
  Sender: FDA-Public Use
  Company Number: US-GALDERMA-US-GDP-12412943

PATIENT
  Sex: Female
  Weight: 59 kg

DRUGS (2)
  1. EPIDUO [Suspect]
     Route: 061
  2. AZITHROMYCIN [Concomitant]
     Route: 048
     Dates: start: 20111106

REACTIONS (1)
  - Drug ineffective [None]
